FAERS Safety Report 22054250 (Version 1)
Quarter: 2023Q1

REPORT INFORMATION
  Report Type: Spontaneous
  Country: US (occurrence: US)
  Receive Date: 20230302
  Receipt Date: 20230302
  Transmission Date: 20230417
  Serious: No
  Sender: FDA-Public Use
  Company Number: US-PFIZER INC-202300082922

PATIENT
  Age: 56 Year
  Sex: Female

DRUGS (12)
  1. XELJANZ [Suspect]
     Active Substance: TOFACITINIB CITRATE
     Dosage: 5 MG, 2X/DAY
     Route: 048
     Dates: end: 20230222
  2. PFIZER-BIONTECH COVID-19 VACCINE [Concomitant]
     Active Substance: TOZINAMERAN
     Dosage: 30 UG
  3. PREGABALIN [Concomitant]
     Active Substance: PREGABALIN
     Dosage: 150 MG
  4. IBUPROFEN [Concomitant]
     Active Substance: IBUPROFEN
     Dosage: 600 MG
  5. SERTRALINE HYDROCHLORIDE [Concomitant]
     Active Substance: SERTRALINE HYDROCHLORIDE
     Dosage: 50 MG
  6. LEVOTHYROXINE SODIUM [Concomitant]
     Active Substance: LEVOTHYROXINE SODIUM
     Dosage: 150 UG
  7. ROSUVASTATIN CALCIUM [Concomitant]
     Active Substance: ROSUVASTATIN CALCIUM
     Dosage: 5 MG
  8. MONTELUKAST SODIUM [Concomitant]
     Active Substance: MONTELUKAST SODIUM
     Dosage: 10 MG
  9. METHYLPREDNISOLONE [Concomitant]
     Active Substance: METHYLPREDNISOLONE
     Dosage: 4 MG
  10. ODEFSEY [Concomitant]
     Active Substance: EMTRICITABINE\RILPIVIRINE HYDROCHLORIDE\TENOFOVIR ALAFENAMIDE FUMARATE
     Dosage: UNK
  11. ALBUTEROL SULFATE [Concomitant]
     Active Substance: ALBUTEROL SULFATE
     Dosage: 90 UG
  12. MYRBETRIQ [Concomitant]
     Active Substance: MIRABEGRON
     Dosage: 50 MG

REACTIONS (2)
  - Nasopharyngitis [Not Recovered/Not Resolved]
  - Upper respiratory tract infection [Unknown]

NARRATIVE: CASE EVENT DATE: 20230222
